FAERS Safety Report 5834239-5 (Version None)
Quarter: 2008Q3

REPORT INFORMATION
  Report Type: 
  Country: None (occurrence: None)
  Receive Date: 20080805
  Receipt Date: 20080725
  Transmission Date: 20090109
  Serious: Yes (Other)
  Sender: FDA-Public Use
  Company Number: PHHY2008IT15642

PATIENT
  Sex: Female

DRUGS (2)
  1. ZOMETA [Suspect]
     Dosage: UNK
     Dates: start: 20030401, end: 20051213
  2. CACIT [Suspect]
     Dosage: 1000

REACTIONS (9)
  - BONE PAIN [None]
  - BREAST CANCER [None]
  - BREAST MASS [None]
  - METASTASES TO LYMPH NODES [None]
  - NEOPLASM RECURRENCE [None]
  - OSTEONECROSIS [None]
  - PAIN IN JAW [None]
  - RADIOTHERAPY [None]
  - TOOTH EXTRACTION [None]
